FAERS Safety Report 19090127 (Version 1)
Quarter: 2021Q2

REPORT INFORMATION
  Report Type: Spontaneous
  Country: FR (occurrence: FR)
  Receive Date: 20210405
  Receipt Date: 20210405
  Transmission Date: 20210717
  Serious: Yes (Death)
  Sender: FDA-Public Use
  Company Number: FR-TEVA-2021-FR-1896443

PATIENT
  Age: 73 Year
  Sex: Male
  Weight: 71 kg

DRUGS (11)
  1. RAMIPRIL. [Suspect]
     Active Substance: RAMIPRIL
     Indication: HYPERTENSION
     Dosage: 1 DF
     Route: 048
     Dates: start: 20151107, end: 20151112
  2. TRAMADOL (CHLORHYDRATE DE) [Concomitant]
     Active Substance: TRAMADOL HYDROCHLORIDE
  3. CALCIPARINE [Concomitant]
     Active Substance: HEPARIN CALCIUM
  4. EZETROL [Concomitant]
     Active Substance: EZETIMIBE
  5. TAHOR [Concomitant]
     Active Substance: ATORVASTATIN CALCIUM
  6. KREDEX 6,25 MG, COMPRIME SECABLE [Suspect]
     Active Substance: CARVEDILOL
     Indication: HYPERTENSION
     Dosage: SCORED TABLET, 0.5 DF
     Route: 048
     Dates: start: 201510
  7. INEXIUM [Concomitant]
     Active Substance: ESOMEPRAZOLE
  8. CHIBRO PROSCAR [Concomitant]
     Active Substance: FINASTERIDE
  9. PLAVIX [Concomitant]
     Active Substance: CLOPIDOGREL BISULFATE
  10. KARDEGIC [Concomitant]
     Active Substance: ASPIRIN DL-LYSINE
  11. LANTUS [Concomitant]
     Active Substance: INSULIN GLARGINE

REACTIONS (2)
  - Sinoatrial block [Fatal]
  - Hyperkalaemia [Fatal]

NARRATIVE: CASE EVENT DATE: 20151112
